FAERS Safety Report 24416840 (Version 1)
Quarter: 2024Q4

REPORT INFORMATION
  Report Type: Spontaneous
  Country: US (occurrence: US)
  Receive Date: 20241009
  Receipt Date: 20241009
  Transmission Date: 20250114
  Serious: Yes (Hospitalization)
  Sender: FRESENIUS MEDICAL CARE
  Company Number: US-FMCRTG-FMC-2409-001174

PATIENT
  Age: 38 Year
  Sex: Male

DRUGS (3)
  1. DELFLEX WITH DEXTROSE 1.5% LOW MAGNESIUM LOW CALCIUM [Suspect]
     Active Substance: CALCIUM CHLORIDE\DEXTROSE\MAGNESIUM CHLORIDE\SODIUM CHLORIDE\SODIUM LACTATE
     Indication: End stage renal disease
     Dosage: 7X WEEK, EDW 80 (KG) CA 2.5 (MEQ/L) MG 0.5 (MEQ/L), DEXTROSE?1.5; 2.5; 4.25 %, # EXCHANGES 6, FILL V
     Route: 033
  2. DELFLEX WITH DEXTROSE 2.5% LOW MAGNESIUM LOW CALCIUM [Suspect]
     Active Substance: CALCIUM CHLORIDE\DEXTROSE\MAGNESIUM CHLORIDE\SODIUM CHLORIDE\SODIUM LACTATE
     Indication: End stage renal disease
     Dosage: 7X WEEK, EDW 80 (KG) CA 2.5 (MEQ/L) MG 0.5 (MEQ/L), DEXTROSE?1.5; 2.5; 4.25 %, # EXCHANGES 6, FILL V
     Route: 033
  3. DELFLEX WITH DEXTROSE 4.25% LOW MAGNESIUM LOW CALCIUM [Suspect]
     Active Substance: CALCIUM CHLORIDE\DEXTROSE\MAGNESIUM CHLORIDE\SODIUM CHLORIDE\SODIUM LACTATE
     Indication: End stage renal disease
     Dosage: 7X WEEK, EDW 80 (KG) CA 2.5 (MEQ/L) MG 0.5 (MEQ/L), DEXTROSE?1.5; 2.5; 4.25 %, # EXCHANGES 6, FILL V
     Route: 033

REACTIONS (1)
  - Peritonitis bacterial [Unknown]
